FAERS Safety Report 14156449 (Version 1)
Quarter: 2017Q4

REPORT INFORMATION
  Report Type: Spontaneous
  Country: SV (occurrence: SV)
  Receive Date: 20171103
  Receipt Date: 20171103
  Transmission Date: 20180321
  Serious: Yes (Hospitalization, Other)
  Sender: FDA-Public Use
  Company Number: SV-ROCHE-2014148

PATIENT
  Sex: Female

DRUGS (1)
  1. TECENTRIQ [Suspect]
     Active Substance: ATEZOLIZUMAB
     Indication: TRANSITIONAL CELL CARCINOMA
     Route: 042
     Dates: start: 20170911, end: 20171002

REACTIONS (4)
  - Hyponatraemia [Recovering/Resolving]
  - Diarrhoea [Unknown]
  - Transaminases increased [Recovering/Resolving]
  - Blood creatinine increased [Not Recovered/Not Resolved]
